FAERS Safety Report 18443072 (Version 1)
Quarter: 2020Q4

REPORT INFORMATION
  Report Type: Spontaneous
  Country: US (occurrence: US)
  Receive Date: 20201030
  Receipt Date: 20201030
  Transmission Date: 20210114
  Serious: No
  Sender: FDA-Public Use
  Company Number: US-CIPLA LTD.-2020US06110

PATIENT

DRUGS (4)
  1. FOLIC ACID. [Concomitant]
     Active Substance: FOLIC ACID
     Indication: ANAEMIA
     Dosage: 800 MILLIGRAM, QD
     Route: 065
     Dates: start: 2018
  2. ESCITALOPRAM [Suspect]
     Active Substance: ESCITALOPRAM OXALATE
     Indication: DEPRESSION
     Dosage: UNK UNK, QD (ONE AND HALF TABLET)
     Route: 048
     Dates: start: 2013
  3. ESCITALOPRAM [Suspect]
     Active Substance: ESCITALOPRAM OXALATE
     Dosage: UNK UNK, QD (EXTRA DOSE ADMINISTERED)
     Route: 048
     Dates: start: 202008
  4. MULTIVITAMINS [VITAMINS NOS] [Concomitant]
     Active Substance: VITAMINS
     Indication: ROUTINE HEALTH MAINTENANCE
     Dosage: UNK, QD (SEVERAL DOSES, ONCE A DAY)
     Route: 065
     Dates: start: 202001

REACTIONS (9)
  - Product substitution issue [Unknown]
  - Extra dose administered [Unknown]
  - Depressed mood [Unknown]
  - Dizziness [Unknown]
  - Headache [Recovered/Resolved]
  - Product quality issue [Unknown]
  - Mood altered [Recovered/Resolved]
  - Asthenia [Not Recovered/Not Resolved]
  - Withdrawal syndrome [Unknown]

NARRATIVE: CASE EVENT DATE: 202008
